FAERS Safety Report 11215345 (Version 1)
Quarter: 2015Q2

REPORT INFORMATION
  Report Type: Spontaneous
  Country: FR (occurrence: FR)
  Receive Date: 20150624
  Receipt Date: 20150624
  Transmission Date: 20150821
  Serious: Yes (Hospitalization)
  Sender: FDA-Public Use
  Company Number: FR-009507513-1506FRA010670

PATIENT
  Age: 81 Year
  Sex: Female

DRUGS (9)
  1. ADROVANCE [Suspect]
     Active Substance: ALENDRONATE SODIUM\CHOLECALCIFEROL
     Indication: OSTEOPOROSIS
     Dosage: UNK
     Route: 048
     Dates: start: 20130426, end: 20150508
  2. KETOPROFEN. [Concomitant]
     Active Substance: KETOPROFEN
     Route: 061
  3. MACROGOL [Concomitant]
     Active Substance: POLYETHYLENE GLYCOLS
  4. ADROVANCE [Suspect]
     Active Substance: ALENDRONATE SODIUM\CHOLECALCIFEROL
     Indication: OSTEOPOROTIC FRACTURE
  5. METEOXANE (PHLOROGLUCINOL (+) SIMETHICONE) [Concomitant]
  6. ARANESP [Concomitant]
     Active Substance: DARBEPOETIN ALFA
     Dosage: 300 UG, QW
  7. CLOMIPRAMINE HYDROCHLORIDE. [Concomitant]
     Active Substance: CLOMIPRAMINE HYDROCHLORIDE
     Dosage: 0.5 DF, QD
  8. TITANOREINE (CARRAGEENAN (+) TITANIUM DIOXIDE (+) ZINC OXIDE) [Concomitant]
  9. TEVAGRASTIM [Concomitant]
     Active Substance: FILGRASTIM
     Dosage: 30MLU/0.5ML, TWICE A WEEK

REACTIONS (1)
  - Duodenal ulcer haemorrhage [Recovered/Resolved]

NARRATIVE: CASE EVENT DATE: 20150508
